FAERS Safety Report 16790991 (Version 1)
Quarter: 2019Q3

REPORT INFORMATION
  Report Type: Spontaneous
  Country: CH (occurrence: CH)
  Receive Date: 20190910
  Receipt Date: 20190910
  Transmission Date: 20191005
  Serious: Yes (Death, Hospitalization)
  Sender: FDA-Public Use
  Company Number: CH-PFIZER INC-2019383638

PATIENT
  Age: 70 Year
  Sex: Male

DRUGS (12)
  1. BILOL [Concomitant]
     Active Substance: BISOPROLOL
     Dosage: 2.5 MG, 1X/DAY (0-0-1-0)
     Route: 048
  2. PANTOZOL [Concomitant]
     Active Substance: PANTOPRAZOLE SODIUM
     Dosage: 40 MG, 1X/DAY (1-0-0-0)
     Route: 048
  3. VITAMIN D3 [Concomitant]
     Active Substance: CHOLECALCIFEROL
     Dosage: 1000 IU, 1X/DAY (1-0-0-0)
     Route: 048
  4. AMLODIPIN [AMLODIPINE BESILATE] [Concomitant]
     Dosage: 5 MG, 1.5X/DAY (0.5-0-1-0)
     Route: 048
  5. ATORVASTATIN PFIZER [Concomitant]
     Active Substance: ATORVASTATIN
     Dosage: 40 MG, 1X/DAY (0-0-1-0)
     Route: 048
  6. MARCOUMAR [Suspect]
     Active Substance: PHENPROCOUMON
     Indication: CARDIOMYOPATHY
     Dosage: DOSAGE ADAPTED TO TARGET INR 2,3 -2,8
  7. FRAGMIN [Suspect]
     Active Substance: DALTEPARIN SODIUM
     Indication: CARDIOMYOPATHY
     Dosage: 10000 IU, AS NEEDED (IF NEEDED ( AT INR {2,3))
     Route: 058
     Dates: end: 20190812
  8. ASPIRIN CARDIO [Suspect]
     Active Substance: ASPIRIN
     Dosage: 100 MG, 1X/DAY
     Dates: end: 20190813
  9. TOREM [TORASEMIDE SODIUM] [Concomitant]
     Dosage: 5 MG, 1X/DAY
     Route: 048
  10. BACTRIM [Concomitant]
     Active Substance: SULFAMETHOXAZOLE\TRIMETHOPRIM
     Dosage: UNK UNK, 2X/DAY (1-0-1-0)
     Route: 048
  11. NEPHROTRANS [Concomitant]
     Active Substance: SODIUM BICARBONATE
     Dosage: UNK UNK, 3X/DAY (1-1-1-0)
     Route: 048
  12. KEPPRA [Concomitant]
     Active Substance: LEVETIRACETAM
     Dosage: 500 MG, 1.5X/DAY (1-0-0.5-0)
     Route: 048

REACTIONS (1)
  - Cerebral haemorrhage [Fatal]

NARRATIVE: CASE EVENT DATE: 20190813
